FAERS Safety Report 11868038 (Version 1)
Quarter: 2015Q4

REPORT INFORMATION
  Report Type: Spontaneous
  Country: IT (occurrence: IT)
  Receive Date: 20151224
  Receipt Date: 20151224
  Transmission Date: 20160305
  Serious: Yes (Other)
  Sender: FDA-Public Use
  Company Number: PHHY2015IT164741

PATIENT
  Age: 57 Year
  Sex: Male
  Weight: 40 kg

DRUGS (2)
  1. CISPLATIN. [Suspect]
     Active Substance: CISPLATIN
     Indication: OESOPHAGEAL ADENOCARCINOMA
     Dosage: 50 MG, CYCLIC
     Route: 042
     Dates: start: 20141117
  2. PACLITAXEL. [Suspect]
     Active Substance: PACLITAXEL
     Indication: OESOPHAGEAL ADENOCARCINOMA
     Dosage: 60 MG, CYCLIC
     Route: 042
     Dates: start: 20141117

REACTIONS (2)
  - Drop attacks [Unknown]
  - Fall [Unknown]

NARRATIVE: CASE EVENT DATE: 20150704
